FAERS Safety Report 9501939 (Version 8)
Quarter: 2016Q1

REPORT INFORMATION
  Report Type: Report from Study
  Country: DE (occurrence: DE)
  Receive Date: 20130905
  Receipt Date: 20160301
  Transmission Date: 20160526
  Serious: Yes (Other)
  Sender: FDA-Public Use
  Company Number: DE-TEVA-430246USA

PATIENT
  Age: 78 Year
  Sex: Male

DRUGS (12)
  1. CLEMASTIN [Concomitant]
     Active Substance: CLEMASTINE
     Dosage: 2 MILLIGRAM DAILY; ON DAY 1 OF BENDAMUSTINE TREATMENT
     Dates: start: 20130603
  2. RITUXIMAB [Concomitant]
     Active Substance: RITUXIMAB
     Dosage: 690 MILLIGRAM DAILY;
     Dates: start: 20130603
  3. BENDAMUSTINE [Suspect]
     Active Substance: BENDAMUSTINE
     Dosage: CYCLIC (CYCLE 3 DAY 1+2)
     Route: 042
     Dates: start: 20130805
  4. L-THYROXIN [Concomitant]
     Active Substance: LEVOTHYROXINE SODIUM
  5. BENDAMUSTINE [Suspect]
     Active Substance: BENDAMUSTINE
     Indication: CHRONIC LYMPHOCYTIC LEUKAEMIA
     Dosage: CYCLIC (CYCLE 1)
     Route: 042
     Dates: start: 20130603
  6. BENDAMUSTINE [Suspect]
     Active Substance: BENDAMUSTINE
     Dosage: CYCLIC (CYCLE 4 DAY 1+2)
     Route: 042
     Dates: start: 20130916
  7. ONDANSETRON [Concomitant]
     Active Substance: ONDANSETRON
     Dosage: 8 MILLIGRAM DAILY; ON DAY 1 AND 2 OF BENDAMUSTINE TREATMENT
     Dates: start: 20130603
  8. RANITIDINE [Concomitant]
     Active Substance: RANITIDINE\RANITIDINE HYDROCHLORIDE
     Dosage: 1 AMPOULE ON DAY 1 OF BENDAMUSTINE TREATMENT
     Dates: start: 20130603
  9. BENDAMUSTINE [Suspect]
     Active Substance: BENDAMUSTINE
     Dosage: CYCLIC (CYCLE 5 DAY 1+2)
     Route: 042
     Dates: start: 20131014
  10. BISOPROLOL [Concomitant]
     Active Substance: BISOPROLOL
  11. BENDAMUSTINE [Suspect]
     Active Substance: BENDAMUSTINE
     Dosage: CYCLIC (CYCLE 2, DAY 1 + 2)
     Route: 042
     Dates: start: 20130708
  12. PARACETAMOL [Concomitant]
     Active Substance: ACETAMINOPHEN
     Dosage: 1000 MILLIGRAM DAILY; ON DAY 1 OF BENDAMUSTINE TREATMENT CYCLE
     Dates: start: 20130603

REACTIONS (6)
  - Insomnia [Recovered/Resolved]
  - Leukopenia [Recovered/Resolved]
  - Asthenia [Recovered/Resolved]
  - Oedema peripheral [Recovered/Resolved]
  - Dyspnoea exertional [Recovered/Resolved]
  - Rash [Recovered/Resolved]

NARRATIVE: CASE EVENT DATE: 20130611
